FAERS Safety Report 7448111-0 (Version None)
Quarter: 2011Q2

REPORT INFORMATION
  Report Type: 
  Country: None (occurrence: None)
  Receive Date: 20110429
  Receipt Date: 20100602
  Transmission Date: 20111010
  Serious: No
  Sender: FDA-Public Use
  Company Number: US-ASTRAZENECA-2010SE08511

PATIENT
  Sex: Female

DRUGS (3)
  1. TOPROL-XL [Suspect]
     Route: 048
  2. NEXIUM [Suspect]
     Route: 048
  3. CRESTOR [Suspect]
     Route: 048

REACTIONS (6)
  - HYPERTENSION [None]
  - DRUG DOSE OMISSION [None]
  - CHEST PAIN [None]
  - FATIGUE [None]
  - INCORRECT DOSE ADMINISTERED [None]
  - ASTHENIA [None]
